FAERS Safety Report 10594862 (Version 3)
Quarter: 2015Q1

REPORT INFORMATION
  Report Type: Spontaneous
  Country: US (occurrence: US)
  Receive Date: 20141120
  Receipt Date: 20150111
  Transmission Date: 20150720
  Serious: No
  Sender: FDA-Public Use
  Company Number: US-009507513-1411USA008376

PATIENT
  Age: 24 Year
  Sex: Female
  Weight: 102.95 kg

DRUGS (1)
  1. NEXPLANON [Suspect]
     Active Substance: ETONOGESTREL
     Indication: CONTRACEPTION
     Dosage: 1 ROD / 3YEARS
     Route: 059
     Dates: start: 20141126, end: 20141126

REACTIONS (2)
  - Device difficult to use [Recovered/Resolved]
  - Application site discomfort [Unknown]

NARRATIVE: CASE EVENT DATE: 20141126
